FAERS Safety Report 9395655 (Version 3)
Quarter: 2013Q3

REPORT INFORMATION
  Report Type: Spontaneous
  Country: JP (occurrence: JP)
  Receive Date: 20130711
  Receipt Date: 20130918
  Transmission Date: 20140515
  Serious: Yes (Other)
  Sender: FDA-Public Use
  Company Number: JP-EISAI INC-E3810-06479-SPO-JP

PATIENT
  Age: 73 Year
  Sex: Male
  Weight: 48 kg

DRUGS (7)
  1. PARIET (RABEPRAZOLE) [Suspect]
     Indication: GASTROOESOPHAGEAL REFLUX DISEASE
     Route: 048
     Dates: start: 20130524, end: 20130529
  2. URSO [Concomitant]
     Indication: HEPATIC FUNCTION ABNORMAL
     Route: 048
     Dates: end: 20130529
  3. PERSANTIN [Concomitant]
     Indication: ARRHYTHMIA
     Route: 048
     Dates: end: 20130529
  4. FEBURIC [Concomitant]
     Indication: HYPERURICAEMIA
     Route: 048
     Dates: end: 20130529
  5. FLUITRAN [Concomitant]
     Indication: CARDIAC FAILURE CHRONIC
     Route: 048
     Dates: end: 20130529
  6. RILMAZAFONE [Concomitant]
     Indication: INSOMNIA
     Route: 048
     Dates: end: 20130529
  7. ALLEGRA OD [Concomitant]
     Indication: DERMATITIS ALLERGIC
     Route: 048
     Dates: end: 20130529

REACTIONS (3)
  - Rhabdomyolysis [Recovered/Resolved]
  - Hyponatraemia [Recovering/Resolving]
  - Adrenal insufficiency [Recovering/Resolving]
